FAERS Safety Report 15310899 (Version 1)
Quarter: 2018Q3

REPORT INFORMATION
  Report Type: Spontaneous
  Country: US (occurrence: US)
  Receive Date: 20180813
  Receipt Date: 20180813
  Transmission Date: 20181010
  Serious: Yes (Hospitalization, Other)
  Sender: FDA-Public Use
  Company Number: None

PATIENT
  Age: 69 Year
  Sex: Female
  Weight: 67.5 kg

DRUGS (1)
  1. SIMPONI [Suspect]
     Active Substance: GOLIMUMAB
     Indication: RHEUMATOID ARTHRITIS
     Route: 042

REACTIONS (12)
  - Dyspnoea [None]
  - Decreased appetite [None]
  - Weight decreased [None]
  - White blood cell count decreased [None]
  - Oropharyngeal pain [None]
  - Incoherent [None]
  - Hypotonia [None]
  - Hypertension [None]
  - General physical health deterioration [None]
  - Confusional state [None]
  - Mental impairment [None]
  - Motor dysfunction [None]

NARRATIVE: CASE EVENT DATE: 20180813
